FAERS Safety Report 18027431 (Version 3)
Quarter: 2020Q3

REPORT INFORMATION
  Report Type: Other
  Country: US (occurrence: US)
  Receive Date: 20200716
  Receipt Date: 20200912
  Transmission Date: 20201103
  Serious: Yes (Other)
  Sender: FDA-Public Use
  Company Number: US-ROCHE-2641602

PATIENT
  Age: 22 Year
  Sex: Female
  Weight: 81.27 kg

DRUGS (5)
  1. OCREVUS [Suspect]
     Active Substance: OCRELIZUMAB
     Indication: RELAPSING MULTIPLE SCLEROSIS
     Dosage: DATE OF TREATMENT: 9/JUL/2019, 24/JUL/2019 AND 21/JUL/2020.
     Route: 042
     Dates: start: 20190709
  2. OCREVUS [Suspect]
     Active Substance: OCRELIZUMAB
     Dosage: DATE OF TREATMENT: 9/JUL/2019, 24/JUL/2019 AND 21/JUL/2020.
     Route: 042
     Dates: start: 201901
  3. BACTRIM [Suspect]
     Active Substance: SULFAMETHOXAZOLE\TRIMETHOPRIM
     Indication: CELLULITIS
     Route: 065
  4. IBUPROFEN. [Concomitant]
     Active Substance: IBUPROFEN
     Dosage: TAKES 1 PILL A MONTH AS NEEDED ; ONGOING YES
  5. ROBAXIN [Concomitant]
     Active Substance: METHOCARBAMOL
     Indication: MUSCLE TIGHTNESS
     Dosage: TAKES 1 TO 2 TABLETS EVERY 6 TO 8 HOURS AS NEEDED, ONGOING: YES
     Route: 048
     Dates: start: 2020

REACTIONS (7)
  - Drug hypersensitivity [Not Recovered/Not Resolved]
  - Cellulitis [Not Recovered/Not Resolved]
  - Breast abscess [Recovered/Resolved]
  - Vitamin D decreased [Recovering/Resolving]
  - Depression [Unknown]
  - Magnetic resonance imaging abnormal [Unknown]
  - Muscle tightness [Not Recovered/Not Resolved]

NARRATIVE: CASE EVENT DATE: 2019
